FAERS Safety Report 18063153 (Version 1)
Quarter: 2020Q3

REPORT INFORMATION
  Report Type: Spontaneous
  Country: US (occurrence: US)
  Receive Date: 20200723
  Receipt Date: 20200723
  Transmission Date: 20201103
  Serious: Yes (Other)
  Sender: FDA-Public Use
  Company Number: US-PURDUE-USA-2020-0158862

PATIENT
  Sex: Male

DRUGS (5)
  1. OXYCONTIN [Suspect]
     Active Substance: OXYCODONE HYDROCHLORIDE
     Indication: PRODUCT USED FOR UNKNOWN INDICATION
     Dosage: UNKNOWN
  2. DILAUDID [Suspect]
     Active Substance: HYDROMORPHONE HYDROCHLORIDE
     Indication: PRODUCT USED FOR UNKNOWN INDICATION
     Dosage: UNKNOWN
  3. OXYFAST [Suspect]
     Active Substance: OXYCODONE
     Indication: PRODUCT USED FOR UNKNOWN INDICATION
     Dosage: UNKNOWN
  4. BUTRANS [Suspect]
     Active Substance: BUPRENORPHINE
     Indication: PRODUCT USED FOR UNKNOWN INDICATION
     Dosage: UNKNOWN
  5. MS CONTIN [Suspect]
     Active Substance: MORPHINE SULFATE
     Indication: PRODUCT USED FOR UNKNOWN INDICATION
     Dosage: UNKNOWN

REACTIONS (18)
  - Infantile apnoea [Unknown]
  - Jaundice neonatal [Unknown]
  - Learning disability [Unknown]
  - Congenital anomaly [Unknown]
  - Neonatal respiratory distress syndrome [Unknown]
  - Bronchopulmonary dysplasia [Unknown]
  - Retinopathy of prematurity [Unknown]
  - Developmental delay [Unknown]
  - Drug dependence [Unknown]
  - Sepsis neonatal [Unknown]
  - Patent ductus arteriosus [Unknown]
  - Bradycardia neonatal [Unknown]
  - Gastrooesophageal reflux disease [Unknown]
  - Poor feeding infant [Unknown]
  - Premature baby [Unknown]
  - Cardiac disorder [Unknown]
  - Foetal exposure timing unspecified [Unknown]
  - Drug withdrawal syndrome neonatal [Unknown]
